FAERS Safety Report 12798165 (Version 1)
Quarter: 2016Q3

REPORT INFORMATION
  Report Type: Spontaneous
  Country: US (occurrence: US)
  Receive Date: 20160930
  Receipt Date: 20160930
  Transmission Date: 20161109
  Serious: Yes (Hospitalization)
  Sender: FDA-Public Use
  Company Number: None

PATIENT
  Age: 70 Year
  Sex: Male
  Weight: 106 kg

DRUGS (14)
  1. ASPIRIN. [Concomitant]
     Active Substance: ASPIRIN
  2. ATORVASTATIN [Concomitant]
     Active Substance: ATORVASTATIN
  3. ZYPREXA [Concomitant]
     Active Substance: OLANZAPINE
  4. CISPLATIN. [Suspect]
     Active Substance: CISPLATIN
     Dates: end: 20160831
  5. AMLODIPINE [Concomitant]
     Active Substance: AMLODIPINE BESYLATE
  6. SENEKOT [Concomitant]
  7. ETOPOSIDE (VP-16) [Suspect]
     Active Substance: ETOPOSIDE
     Dates: end: 20160831
  8. BENAZEPRIL-HCTZ [Concomitant]
     Active Substance: BENAZEPRIL HYDROCHLORIDE\HYDROCHLOROTHIAZIDE
  9. PREDNISONE. [Concomitant]
     Active Substance: PREDNISONE
  10. ADVAIR DISKUS [Concomitant]
     Active Substance: FLUTICASONE PROPIONATE\SALMETEROL XINAFOATE
  11. ALPRAZOLAM. [Concomitant]
     Active Substance: ALPRAZOLAM
  12. RANITIDINE. [Concomitant]
     Active Substance: RANITIDINE
  13. VENTOLIN HFA [Concomitant]
     Active Substance: ALBUTEROL SULFATE
  14. SPIRIVA [Concomitant]
     Active Substance: TIOTROPIUM BROMIDE MONOHYDRATE

REACTIONS (9)
  - Thrombocytopenia [None]
  - Dizziness [None]
  - Platelet count decreased [None]
  - Neutrophil count decreased [None]
  - Deep vein thrombosis [None]
  - Asthenia [None]
  - Anaemia [None]
  - Presyncope [None]
  - Hypomagnesaemia [None]

NARRATIVE: CASE EVENT DATE: 20160913
